FAERS Safety Report 7088780-0 (Version None)
Quarter: 2010Q4

REPORT INFORMATION
  Report Type: 
  Country: None (occurrence: None)
  Receive Date: 20101108
  Receipt Date: 20101025
  Transmission Date: 20110411
  Serious: Yes (Other)
  Sender: FDA-Public Use
  Company Number: PHHY2010BR72659

PATIENT
  Sex: Male

DRUGS (1)
  1. DIOVAN [Suspect]
     Indication: HYPERTENSION
     Dosage: 160 MG, TWO TABLETS, DAILY
     Route: 048
     Dates: start: 20080101

REACTIONS (6)
  - BLOOD GLUCOSE INCREASED [None]
  - BLOOD PRESSURE INADEQUATELY CONTROLLED [None]
  - CARDIOMEGALY [None]
  - DIABETES MELLITUS [None]
  - FEELING ABNORMAL [None]
  - PAIN IN EXTREMITY [None]
